FAERS Safety Report 8520653-6 (Version None)
Quarter: 2012Q3

REPORT INFORMATION
  Report Type: 
  Country: None (occurrence: None)
  Receive Date: 20120719
  Receipt Date: 20120711
  Transmission Date: 20120928
  Serious: Yes (Hospitalization)
  Sender: FDA-Public Use
  Company Number: GB-NOVOPROD-355929

PATIENT
  Sex: Male

DRUGS (2)
  1. NOVORAPID [Suspect]
     Indication: GESTATIONAL DIABETES
     Dosage: UNK
     Route: 064
  2. INSULATARD NPH HUMAN [Suspect]
     Indication: GESTATIONAL DIABETES
     Dosage: UNK
     Route: 064

REACTIONS (3)
  - FOETAL EXPOSURE DURING PREGNANCY [None]
  - HYPOGLYCAEMIA NEONATAL [None]
  - PREMATURE BABY [None]
